FAERS Safety Report 9286836 (Version 1)
Quarter: 2013Q2

REPORT INFORMATION
  Report Type: Spontaneous
  Country: US (occurrence: US)
  Receive Date: 20130513
  Receipt Date: 20130513
  Transmission Date: 20140414
  Serious: Yes (Other)
  Sender: FDA-Public Use
  Company Number: CHPA2013US007879

PATIENT
  Age: 7 Year
  Sex: Female

DRUGS (2)
  1. TRIAMINIC DAY TIME COLD + COUGH [Suspect]
     Indication: COUGH
     Dosage: UNK, UNK
     Route: 048
     Dates: start: 2012
  2. LORATADIN [Concomitant]
     Indication: COUGH
     Dosage: 5 MG, QD

REACTIONS (5)
  - Ear infection [Recovered/Resolved]
  - Cough [Unknown]
  - Seasonal allergy [Unknown]
  - Condition aggravated [Unknown]
  - Psychomotor hyperactivity [Not Recovered/Not Resolved]
